FAERS Safety Report 14755586 (Version 1)
Quarter: 2018Q2

REPORT INFORMATION
  Report Type: Spontaneous
  Country: US (occurrence: US)
  Receive Date: 20180413
  Receipt Date: 20180413
  Transmission Date: 20180711
  Serious: No
  Sender: FDA-Public Use
  Company Number: US-BION-006698

PATIENT
  Age: 76 Year
  Sex: Male
  Weight: 85.73 kg

DRUGS (1)
  1. ALEVE [Suspect]
     Active Substance: NAPROXEN SODIUM
     Indication: HEADACHE
     Route: 048
     Dates: start: 20171002

REACTIONS (5)
  - Nausea [Not Recovered/Not Resolved]
  - Feeling abnormal [Unknown]
  - Poor quality drug administered [Not Recovered/Not Resolved]
  - Oral discomfort [Recovered/Resolved]
  - Product physical consistency issue [Unknown]

NARRATIVE: CASE EVENT DATE: 20171002
